FAERS Safety Report 23900509 (Version 1)
Quarter: 2024Q2

REPORT INFORMATION
  Report Type: Spontaneous
  Country: US (occurrence: None)
  Receive Date: 20240526
  Receipt Date: 20240526
  Transmission Date: 20240716
  Serious: No
  Sender: FDA-Public Use
  Company Number: US-ROCHE-3441718

PATIENT
  Sex: Male

DRUGS (1)
  1. OCREVUS [Suspect]
     Active Substance: OCRELIZUMAB
     Indication: Primary progressive multiple sclerosis
     Route: 065

REACTIONS (8)
  - Visual impairment [Unknown]
  - Contusion [Unknown]
  - Papilloedema [Not Recovered/Not Resolved]
  - Vertigo [Not Recovered/Not Resolved]
  - Eye disorder [Not Recovered/Not Resolved]
  - Joint swelling [Not Recovered/Not Resolved]
  - Feeling abnormal [Not Recovered/Not Resolved]
  - Off label use [Unknown]
